FAERS Safety Report 8777106 (Version 1)
Quarter: 2012Q4

REPORT INFORMATION
  Report Type: 
  Country: AU (occurrence: AU)
  Receive Date: 20120911
  Receipt Date: 20120911
  Transmission Date: 20130627
  Serious: Yes (Hospitalization)
  Sender: FDA-Public Use
  Company Number: PHHY2012AU078590

PATIENT
  Age: 68 Year
  Sex: Male

DRUGS (2)
  1. ACLASTA [Suspect]
     Dosage: 5 mg
     Route: 042
     Dates: start: 20100923
  2. ACLASTA [Suspect]
     Dosage: 5 mg
     Route: 042
     Dates: start: 20110920

REACTIONS (1)
  - Intervertebral disc compression [Unknown]
